FAERS Safety Report 7767566-5 (Version None)
Quarter: 2011Q3

REPORT INFORMATION
  Report Type: 
  Country: None (occurrence: None)
  Receive Date: 20110922
  Receipt Date: 20110913
  Transmission Date: 20111222
  Serious: Yes (Other)
  Sender: FDA-Public Use
  Company Number: GB-JNJFOC-20110906096

PATIENT
  Sex: Female

DRUGS (1)
  1. NICORETTE [Suspect]
     Indication: PRODUCT USED FOR UNKNOWN INDICATION
     Dosage: ONE CARTRIDGE YESTERDAY AND ONE CARTRIDGE THIS MORNING
     Route: 065
     Dates: start: 20110912

REACTIONS (3)
  - DEPRESSED MOOD [None]
  - MULTIPLE SCLEROSIS [None]
  - THROAT IRRITATION [None]
